FAERS Safety Report 4684752-1 (Version None)
Quarter: 2005Q2

REPORT INFORMATION
  Report Type: 
  Country: None (occurrence: None)
  Receive Date: 20050603
  Receipt Date: 20050524
  Transmission Date: 20051028
  Serious: Yes (Other)
  Sender: FDA-Public Use
  Company Number: 2005079840

PATIENT
  Age: 27 Year
  Sex: Male

DRUGS (1)
  1. VIAGRA [Suspect]
     Indication: MALE SEXUAL DYSFUNCTION
     Dosage: 50 MG, ORAL
     Route: 048
     Dates: start: 20041101

REACTIONS (1)
  - VENTRICULAR HYPERTROPHY [None]
